FAERS Safety Report 10237705 (Version 2)
Quarter: 2014Q2

REPORT INFORMATION
  Report Type: Spontaneous
  Country: FR (occurrence: FR)
  Receive Date: 20140616
  Receipt Date: 20140616
  Transmission Date: 20141212
  Serious: Yes (Other)
  Sender: FDA-Public Use
  Company Number: FR-UCBSA-105960

PATIENT
  Age: 31 Year
  Sex: Female
  Weight: 84 kg

DRUGS (9)
  1. KEPPRA [Suspect]
     Indication: EPILEPSY
     Dosage: 500 MG, 2X/DAY (BID)
     Route: 048
     Dates: start: 20130723
  2. KEPPRA [Suspect]
     Dosage: DAILY DOSE: 4G
     Route: 048
  3. DEPAKINE [Concomitant]
     Indication: EPILEPSY
     Dosage: DAILY DOSE: 1500 MG
     Route: 048
     Dates: end: 20130703
  4. LAMICTAL [Concomitant]
     Indication: EPILEPSY
     Dosage: 350 MG, ONCE DAILY (QD)
     Route: 048
  5. LAMICTAL [Concomitant]
     Dosage: DAILY DOSE: 600 MG
     Route: 048
  6. EPITOMAX [Concomitant]
     Indication: EPILEPSY
     Dosage: DAILY DOSE: 500MG
     Route: 048
     Dates: end: 20130703
  7. ZEBINIX [Concomitant]
     Indication: EPILEPSY
     Dosage: 800 MG, ONCE DAILY (QD)
     Route: 048
  8. ZEBINIX [Concomitant]
     Dosage: DAILY DOSE: 1200 MG
     Route: 048
  9. URBANYL [Concomitant]
     Indication: EPILEPSY
     Dosage: DAILY DOSE: 40MG

REACTIONS (5)
  - Status epilepticus [Unknown]
  - Premature delivery [Unknown]
  - Maternal exposure during pregnancy [Recovered/Resolved]
  - Drug intolerance [Unknown]
  - Overdose [Unknown]
